FAERS Safety Report 5508045-5 (Version None)
Quarter: 2007Q4

REPORT INFORMATION
  Report Type: 
  Country: None (occurrence: None)
  Receive Date: 20071106
  Receipt Date: 20071026
  Transmission Date: 20080405
  Serious: Yes (Other)
  Sender: FDA-Public Use
  Company Number: FR-PFIZER INC-2007091467

PATIENT
  Sex: Male

DRUGS (2)
  1. CELEBREX [Suspect]
  2. DRUG, UNSPECIFIED [Concomitant]

REACTIONS (1)
  - TOXIC SKIN ERUPTION [None]
